FAERS Safety Report 13431846 (Version 2)
Quarter: 2017Q3

REPORT INFORMATION
  Report Type: Spontaneous
  Country: US (occurrence: US)
  Receive Date: 20170412
  Receipt Date: 20170707
  Transmission Date: 20171127
  Serious: No
  Sender: FDA-Public Use
  Company Number: US-JNJFOC-20170304434

PATIENT
  Age: 61 Year
  Sex: Female
  Weight: 75.3 kg

DRUGS (3)
  1. XARELTO [Suspect]
     Active Substance: RIVAROXABAN
     Indication: PULMONARY EMBOLISM
     Route: 048
     Dates: start: 20170228
  2. XARELTO [Suspect]
     Active Substance: RIVAROXABAN
     Indication: PULMONARY EMBOLISM
     Route: 048
     Dates: start: 20161220, end: 201612
  3. XARELTO [Suspect]
     Active Substance: RIVAROXABAN
     Indication: PULMONARY EMBOLISM
     Route: 048
     Dates: start: 201612, end: 20170228

REACTIONS (8)
  - Contusion [Recovered/Resolved]
  - Malaise [Unknown]
  - Vomiting [Unknown]
  - Inappropriate schedule of drug administration [Unknown]
  - Drug dose omission [Unknown]
  - Abnormal loss of weight [Not Recovered/Not Resolved]
  - Diarrhoea [Unknown]
  - Product label issue [Unknown]

NARRATIVE: CASE EVENT DATE: 201612
